FAERS Safety Report 7148237-5 (Version None)
Quarter: 2010Q4

REPORT INFORMATION
  Report Type: 
  Country: None (occurrence: None)
  Receive Date: 20101209
  Receipt Date: 20101203
  Transmission Date: 20110411
  Serious: Yes (Death, Hospitalization, Other)
  Sender: FDA-Public Use
  Company Number: PHHY2009JP15891

PATIENT
  Sex: Female
  Weight: 40 kg

DRUGS (10)
  1. ICL670A ICL+DISTAB [Suspect]
     Indication: IRON OVERLOAD
     Dosage: 500 MG, UNK
     Route: 048
     Dates: start: 20080909, end: 20090924
  2. ICL670A ICL+DISTAB [Suspect]
     Dosage: 500 MG, UNK
     Route: 048
     Dates: start: 20090925, end: 20091022
  3. NEORAL [Suspect]
     Indication: APLASTIC ANAEMIA
     Dosage: 10 MG, UNK
     Route: 048
     Dates: start: 20071122, end: 20090930
  4. NEORAL [Suspect]
     Dosage: 75 MG, UNK
     Route: 048
     Dates: start: 20091001, end: 20091014
  5. CLARITHROMYCIN [Concomitant]
     Dosage: 400 MG
     Route: 048
     Dates: start: 20080811, end: 20080921
  6. DESFERAL [Concomitant]
     Dosage: 500 MG
     Route: 030
  7. NEUTROGIN [Concomitant]
     Indication: APLASTIC ANAEMIA
     Dosage: 2.50 UG
     Dates: start: 20060810
  8. DIFLUCAN [Concomitant]
     Dosage: 200 MG, UNK
     Route: 048
     Dates: start: 20080811, end: 20081015
  9. GLAKAY [Concomitant]
     Indication: APLASTIC ANAEMIA
     Dosage: 45 MG, UNK
     Route: 048
     Dates: start: 20060610, end: 20091028
  10. ISONIAZID [Concomitant]
     Dosage: 100 MG, UNK
     Route: 048
     Dates: start: 20091113, end: 20091116

REACTIONS (11)
  - BACTERIAL INFECTION [None]
  - BLOOD CREATININE INCREASED [None]
  - BLOOD UREA INCREASED [None]
  - BRONCHITIS [None]
  - COUGH [None]
  - DEHYDRATION [None]
  - INFECTION [None]
  - MULTI-ORGAN FAILURE [None]
  - PNEUMONIA [None]
  - PYREXIA [None]
  - RENAL FAILURE [None]
